FAERS Safety Report 22521947 (Version 1)
Quarter: 2023Q2

REPORT INFORMATION
  Report Type: Report from Study
  Country: IN (occurrence: IN)
  Receive Date: 20230605
  Receipt Date: 20230605
  Transmission Date: 20230721
  Serious: Yes (Other)
  Sender: FDA-Public Use
  Company Number: IN-002147023-NVSC2023IN125544

PATIENT
  Age: 44 Year
  Sex: Male

DRUGS (1)
  1. CERTICAN [Suspect]
     Active Substance: EVEROLIMUS
     Indication: Renal transplant
     Dosage: 0.25 MG, BID
     Route: 065
     Dates: start: 20120412, end: 20230522

REACTIONS (1)
  - Proteinuria [Unknown]

NARRATIVE: CASE EVENT DATE: 20230520
